FAERS Safety Report 16863550 (Version 1)
Quarter: 2019Q3

REPORT INFORMATION
  Report Type: Report from Study
  Country: IT (occurrence: IT)
  Receive Date: 20190927
  Receipt Date: 20190927
  Transmission Date: 20191005
  Serious: Yes (Hospitalization, Other)
  Sender: FDA-Public Use
  Company Number: IT-JNJFOC-20190338907

PATIENT

DRUGS (6)
  1. PARACETAMOL [Concomitant]
     Active Substance: ACETAMINOPHEN
     Indication: PROPHYLAXIS
  2. DOXORUBICIN HYDROCHLORIDE. [Suspect]
     Active Substance: DOXORUBICIN HYDROCHLORIDE
     Indication: CENTRAL NERVOUS SYSTEM LYMPHOMA
     Route: 065
  3. CYCLOPHOSPHAMIDE. [Suspect]
     Active Substance: CYCLOPHOSPHAMIDE
     Indication: CENTRAL NERVOUS SYSTEM LYMPHOMA
     Route: 065
  4. VINCRISTINE [Suspect]
     Active Substance: VINCRISTINE
     Indication: CENTRAL NERVOUS SYSTEM LYMPHOMA
     Route: 065
  5. RITUXIMAB. [Suspect]
     Active Substance: RITUXIMAB
     Indication: CENTRAL NERVOUS SYSTEM LYMPHOMA
     Route: 065
  6. PREDNISONE. [Suspect]
     Active Substance: PREDNISONE
     Indication: CENTRAL NERVOUS SYSTEM LYMPHOMA
     Route: 065

REACTIONS (16)
  - Deep vein thrombosis [Unknown]
  - Infection [Unknown]
  - Product use in unapproved indication [Unknown]
  - Syncope [Unknown]
  - Anaemia [Recovered/Resolved]
  - Infusion related reaction [Unknown]
  - Ejection fraction decreased [Unknown]
  - Urinary tract infection [Unknown]
  - Seizure [Unknown]
  - Neutropenia [Recovered/Resolved]
  - Cardiotoxicity [Unknown]
  - Febrile neutropenia [Unknown]
  - Constipation [Unknown]
  - Hepatotoxicity [Unknown]
  - Thrombocytopenia [Recovered/Resolved]
  - Off label use [Unknown]
